FAERS Safety Report 4864769-4 (Version None)
Quarter: 2005Q4

REPORT INFORMATION
  Report Type: 
  Country: None (occurrence: None)
  Receive Date: 20051222
  Receipt Date: 20050909
  Transmission Date: 20060501
  Serious: Yes (Hospitalization)
  Sender: FDA-Public Use
  Company Number: US-MERCK-0509USA01477

PATIENT
  Age: 51 Year
  Sex: Male
  Weight: 111 kg

DRUGS (8)
  1. VIOXX [Suspect]
     Indication: BACK PAIN
     Route: 048
     Dates: start: 20010709, end: 20010723
  2. VIOXX [Suspect]
     Indication: ARTHRALGIA
     Route: 048
     Dates: start: 20010709, end: 20010723
  3. ASPIRIN [Concomitant]
     Route: 065
     Dates: start: 19920101
  4. ATENOLOL [Concomitant]
     Route: 065
  5. ALTACE [Concomitant]
     Route: 065
  6. PYRIDOXINE [Concomitant]
     Route: 065
  7. CYANOCOBALAMIN [Concomitant]
     Route: 065
  8. FOLIC ACID [Concomitant]
     Route: 065

REACTIONS (5)
  - BACK DISORDER [None]
  - BLOOD CHOLESTEROL INCREASED [None]
  - CARDIAC DISORDER [None]
  - MYOCARDIAL INFARCTION [None]
  - THYROID DISORDER [None]
